FAERS Safety Report 10901761 (Version 1)
Quarter: 2015Q1

REPORT INFORMATION
  Report Type: Report from Study
  Country: IT (occurrence: IT)
  Receive Date: 20150310
  Receipt Date: 20150310
  Transmission Date: 20150721
  Serious: Yes (Hospitalization, Other)
  Sender: FDA-Public Use
  Company Number: IT-ABBVIE-15P-083-1348934-00

PATIENT
  Age: 72 Year
  Sex: Male
  Weight: 55 kg

DRUGS (1)
  1. DUODOPA [Suspect]
     Active Substance: CARBIDOPA\LEVODOPA
     Indication: PARKINSON^S DISEASE
     Dosage: MD 8,4(+3) CR 4,0 ED 4,0
     Route: 050
     Dates: start: 20150209, end: 20150216

REACTIONS (10)
  - Pyrexia [Unknown]
  - Peritonitis [Unknown]
  - Intestinal perforation [Unknown]
  - General physical health deterioration [Unknown]
  - On and off phenomenon [Unknown]
  - Pneumonia [Unknown]
  - Localised intraabdominal fluid collection [Unknown]
  - Inflammatory marker increased [Unknown]
  - Abdominal pain [Unknown]
  - Dyskinesia [Unknown]

NARRATIVE: CASE EVENT DATE: 20150211
